FAERS Safety Report 5084880-5 (Version None)
Quarter: 2006Q3

REPORT INFORMATION
  Report Type: 
  Country: None (occurrence: None)
  Receive Date: 20060815
  Receipt Date: 20060516
  Transmission Date: 20061208
  Serious: Yes (Other)
  Sender: FDA-Public Use
  Company Number: SHI_0026_2006

PATIENT
  Age: 82 Year
  Sex: Male

DRUGS (7)
  1. KEIMAX [Suspect]
     Dosage: DF PO
     Route: 048
  2. MARCUMAR [Concomitant]
  3. TORSEMIDE [Concomitant]
  4. ISOKET [Concomitant]
  5. DILTIAZEM HCL [Concomitant]
  6. ADVAIR DISKUS 100/50 [Concomitant]
  7. MOLSIDOMINE [Concomitant]

REACTIONS (1)
  - PROTHROMBIN TIME PROLONGED [None]
